FAERS Safety Report 6155017-6 (Version None)
Quarter: 2009Q2

REPORT INFORMATION
  Report Type: 
  Country: None (occurrence: None)
  Receive Date: 20090410
  Receipt Date: 20090401
  Transmission Date: 20091009
  Serious: Yes (Death, Other)
  Sender: FDA-Public Use
  Company Number: GXKR2009IN04160

PATIENT
  Age: 19 Year
  Sex: Male

DRUGS (2)
  1. DEXAMETHASONE [Suspect]
     Dosage: 1 MG/DAY
  2. STEROIDS NOS (NO INGREDIENTS/SUBSTANCES) [Concomitant]

REACTIONS (22)
  - ABDOMINAL PAIN [None]
  - BACTERIAL CULTURE POSITIVE [None]
  - BODY TINEA [None]
  - CARDIAC ARREST [None]
  - ENTEROBACTER INFECTION [None]
  - EXCORIATION [None]
  - GENERALISED OEDEMA [None]
  - HYPOVOLAEMIC SHOCK [None]
  - OEDEMA PERIPHERAL [None]
  - ONYCHOMYCOSIS [None]
  - PROTEUS INFECTION [None]
  - PULSE ABSENT [None]
  - PURPURA [None]
  - RALES [None]
  - RASH [None]
  - SCROTAL ABSCESS [None]
  - SCROTAL OEDEMA [None]
  - SECONDARY ADRENOCORTICAL INSUFFICIENCY [None]
  - SEPSIS [None]
  - STREPTOCOCCAL INFECTION [None]
  - STRONGYLOIDIASIS [None]
  - ULCER [None]
